FAERS Safety Report 11784745 (Version 2)
Quarter: 2015Q4

REPORT INFORMATION
  Report Type: Spontaneous
  Country: US (occurrence: US)
  Receive Date: 20151130
  Receipt Date: 20151230
  Transmission Date: 20160305
  Serious: Yes (Hospitalization)
  Sender: FDA-Public Use
  Company Number: US-ROCHE-1666871

PATIENT
  Sex: Female
  Weight: 99.43 kg

DRUGS (1)
  1. ESBRIET [Suspect]
     Active Substance: PIRFENIDONE
     Indication: IDIOPATHIC PULMONARY FIBROSIS
     Dosage: 3 CAPSULES PO TID?2403 MG DAILY
     Route: 048
     Dates: start: 20150617

REACTIONS (2)
  - Syncope [Unknown]
  - Pulmonary thrombosis [Unknown]
